FAERS Safety Report 17259414 (Version 1)
Quarter: 2020Q1

REPORT INFORMATION
  Report Type: Spontaneous
  Country: TR (occurrence: TR)
  Receive Date: 20200110
  Receipt Date: 20200110
  Transmission Date: 20200409
  Serious: Yes (Hospitalization, Other)
  Sender: FDA-Public Use
  Company Number: TR-AMNEAL PHARMACEUTICALS-2019-AMRX-03530

PATIENT
  Age: 77 Year
  Sex: Male

DRUGS (7)
  1. WARFARIN SODIUM. [Interacting]
     Active Substance: WARFARIN SODIUM
     Indication: ARRHYTHMIA
  2. WARFARIN SODIUM. [Interacting]
     Active Substance: WARFARIN SODIUM
     Indication: HYPERTENSION
  3. CORASPIN [Interacting]
     Active Substance: ASPIRIN
     Indication: ARRHYTHMIA
  4. WARFARIN SODIUM. [Suspect]
     Active Substance: WARFARIN SODIUM
     Indication: CORONARY ARTERY DISEASE
     Dosage: UNK
     Route: 065
  5. CORASPIN [Interacting]
     Active Substance: ASPIRIN
     Indication: CORONARY ARTERY DISEASE
     Dosage: 100 MILLIGRAM
     Route: 065
  6. CORASPIN [Interacting]
     Active Substance: ASPIRIN
     Indication: HYPERTENSION
  7. CLARITHROMYCIN. [Interacting]
     Active Substance: CLARITHROMYCIN
     Indication: PNEUMONIA
     Dosage: 500 MILLIGRAM, 2X/DAY
     Route: 065

REACTIONS (4)
  - International normalised ratio increased [Recovered/Resolved]
  - Potentiating drug interaction [Recovered/Resolved]
  - Contusion [Recovered/Resolved]
  - Urinary bladder rupture [Recovered/Resolved]
